FAERS Safety Report 6506770-0 (Version None)
Quarter: 2009Q4

REPORT INFORMATION
  Report Type: 
  Country: None (occurrence: None)
  Receive Date: 20091221
  Receipt Date: 20091216
  Transmission Date: 20100525
  Serious: Yes (Hospitalization)
  Sender: FDA-Public Use
  Company Number: CH-ROCHE-675281

PATIENT
  Age: 60 Year
  Sex: Female

DRUGS (7)
  1. RIVOTRIL [Suspect]
     Indication: AVOIDANT PERSONALITY DISORDER
     Route: 048
  2. RIVOTRIL [Interacting]
     Dosage: DOSE INCREASED
     Route: 048
  3. MST [Interacting]
     Route: 048
  4. MST [Interacting]
     Dosage: DOSE INCREASED
     Route: 048
  5. SERESTA [Interacting]
     Indication: AVOIDANT PERSONALITY DISORDER
     Route: 048
  6. SERESTA [Interacting]
     Dosage: DOSE INCREASED
     Route: 048
  7. RIMSTAR [Interacting]
     Indication: TUBERCULOSIS
     Route: 048
     Dates: start: 20090601, end: 20091001

REACTIONS (4)
  - DRUG INTERACTION [None]
  - INSOMNIA [None]
  - MUSCULOSKELETAL PAIN [None]
  - THERAPEUTIC PRODUCT INEFFECTIVE [None]
